FAERS Safety Report 9559376 (Version 2)
Quarter: 2014Q1

REPORT INFORMATION
  Report Type: Spontaneous
  Country: US (occurrence: None)
  Receive Date: 20130925
  Receipt Date: 20140318
  Transmission Date: 20141002
  Serious: Yes (Hospitalization)
  Sender: FDA-Public Use
  Company Number: 2013-US-000343

PATIENT
  Age: 49 Year
  Sex: Female
  Weight: 122 kg

DRUGS (7)
  1. XYREM [Suspect]
     Indication: NARCOLEPSY
     Route: 048
     Dates: start: 20060911, end: 200702
  2. XYREM [Suspect]
     Indication: CATAPLEXY
     Route: 048
     Dates: start: 20060911, end: 200702
  3. FLUOXETINE (FLUOXETINE) [Concomitant]
  4. LOSARTAN (LOSARTAN POTASSIUM) [Concomitant]
  5. METOPROLOL (METOPROLOL SUCCINATE) [Concomitant]
  6. KEPPRA (LEVETIRACETAM) [Concomitant]
  7. PANTOPRAZOLE [Concomitant]

REACTIONS (2)
  - Cardiac failure congestive [None]
  - Back pain [None]
